FAERS Safety Report 5500927-3 (Version None)
Quarter: 2007Q4

REPORT INFORMATION
  Report Type: 
  Country: None (occurrence: None)
  Receive Date: 20071029
  Receipt Date: 20071016
  Transmission Date: 20080405
  Serious: Yes (Hospitalization)
  Sender: FDA-Public Use
  Company Number: PHHO2007US17192

PATIENT
  Age: 56 Year
  Sex: Male

DRUGS (9)
  1. NEORAL [Suspect]
     Indication: RENAL TRANSPLANT
     Dosage: 150 MG, BID
     Route: 048
     Dates: start: 20050708
  2. METOPROLOL [Concomitant]
  3. MYCOPHENOLATE MOFETIL [Suspect]
     Dosage: 500 MG, BID
     Route: 048
     Dates: start: 20050718
  4. PREDNISONE [Concomitant]
  5. OMEPRAZOLE [Concomitant]
  6. SIMVASTATIN [Concomitant]
  7. ALENDRONIC ACID [Concomitant]
  8. ASPIRIN [Concomitant]
  9. INSULIN [Concomitant]

REACTIONS (2)
  - SKIN ULCER [None]
  - WOUND DEBRIDEMENT [None]
